FAERS Safety Report 24677177 (Version 1)
Quarter: 2024Q4

REPORT INFORMATION
  Report Type: Spontaneous
  Country: CN (occurrence: CN)
  Receive Date: 20241129
  Receipt Date: 20241129
  Transmission Date: 20250114
  Serious: Yes (Other)
  Sender: NOVITIUM PHARMA
  Company Number: CN-NOVITIUMPHARMA-2024CNNVP02638

PATIENT
  Age: 59 Year
  Sex: Female

DRUGS (9)
  1. DEXAMETHASONE [Suspect]
     Active Substance: DEXAMETHASONE
     Indication: Plasma cell myeloma
     Dates: start: 202303, end: 202305
  2. DEXAMETHASONE [Suspect]
     Active Substance: DEXAMETHASONE
     Indication: Plasma cell myeloma
  3. BORTEZOMIB [Concomitant]
     Active Substance: BORTEZOMIB
     Indication: Plasma cell myeloma
     Dates: start: 202303, end: 202305
  4. BORTEZOMIB [Concomitant]
     Active Substance: BORTEZOMIB
  5. LENALIDOMIDE [Concomitant]
     Active Substance: LENALIDOMIDE
     Indication: Plasma cell myeloma
     Dates: start: 202303, end: 202305
  6. ASPIRIN [Concomitant]
     Active Substance: ASPIRIN
     Indication: Plasma cell myeloma
  7. Tucidinostat [chidamide] [Concomitant]
  8. Mitoxantrone-liposomal [mitoxantrone hydrochloride liposome] [Concomitant]
  9. ETOPOSIDE [Concomitant]
     Active Substance: ETOPOSIDE

REACTIONS (3)
  - Myelosuppression [Unknown]
  - Febrile neutropenia [Unknown]
  - Haematotoxicity [Unknown]
